FAERS Safety Report 8181554-9 (Version None)
Quarter: 2012Q1

REPORT INFORMATION
  Report Type: 
  Country: None (occurrence: None)
  Receive Date: 20120302
  Receipt Date: 20120222
  Transmission Date: 20120608
  Serious: Yes (Hospitalization)
  Sender: FDA-Public Use
  Company Number: US-MYLANLABS-2012S1004285

PATIENT
  Age: 60 Year
  Sex: Female
  Weight: 98.88 kg

DRUGS (6)
  1. FENTANYL-100 [Suspect]
     Indication: BACK PAIN
     Dosage: Q72H
     Route: 062
     Dates: start: 20050101, end: 20111002
  2. OXYCODONE AND ACETAMINOPHEN [Suspect]
     Indication: PAIN
     Dosage: PRN
     Route: 048
  3. CRESTOR [Concomitant]
  4. FENTANYL-100 [Suspect]
     Dosage: Q72H
     Route: 062
     Dates: start: 20111001
  5. TRILIPIX [Concomitant]
  6. INSULIN [Concomitant]

REACTIONS (5)
  - LETHARGY [None]
  - PYREXIA [None]
  - DRUG EFFECT INCREASED [None]
  - LOCALISED INFECTION [None]
  - OVERDOSE [None]
